FAERS Safety Report 6979863-1 (Version None)
Quarter: 2010Q3

REPORT INFORMATION
  Report Type: 
  Country: None (occurrence: None)
  Receive Date: 20100914
  Receipt Date: 20100907
  Transmission Date: 20110219
  Serious: No
  Sender: FDA-Public Use
  Company Number: US-BIOGENIDEC-2010BI031412

PATIENT
  Age: 52 Year
  Sex: Male

DRUGS (1)
  1. TYSABRI [Suspect]
     Indication: MULTIPLE SCLEROSIS
     Route: 042
     Dates: start: 20060101

REACTIONS (5)
  - DENTAL CARIES [None]
  - INGUINAL HERNIA [None]
  - ORAL PAIN [None]
  - POSTOPERATIVE WOUND INFECTION [None]
  - PYREXIA [None]
